FAERS Safety Report 6149932-7 (Version None)
Quarter: 2009Q2

REPORT INFORMATION
  Report Type: 
  Country: None (occurrence: None)
  Receive Date: 20090409
  Receipt Date: 20090401
  Transmission Date: 20091009
  Serious: No
  Sender: FDA-Public Use
  Company Number: MX-ELI_LILLY_AND_COMPANY-MX200904000674

PATIENT
  Age: 28 Year
  Sex: Male
  Weight: 55 kg

DRUGS (1)
  1. CIALIS [Suspect]
     Dosage: 20 UNK, WEEKLY (1/W)
     Route: 065
     Dates: start: 20080101

REACTIONS (2)
  - EYE BURNS [None]
  - PHOTOPSIA [None]
